FAERS Safety Report 12531786 (Version 2)
Quarter: 2016Q3

REPORT INFORMATION
  Report Type: Spontaneous
  Country: US (occurrence: US)
  Receive Date: 20160706
  Receipt Date: 20160916
  Transmission Date: 20161109
  Serious: Yes (Other)
  Sender: FDA-Public Use
  Company Number: US-PFIZER INC-2016327656

PATIENT
  Age: 43 Year
  Sex: Female
  Weight: 47 kg

DRUGS (2)
  1. DILANTIN [Suspect]
     Active Substance: PHENYTOIN
     Dosage: 2 DF, UNK
     Dates: start: 2001
  2. DILANTIN [Suspect]
     Active Substance: PHENYTOIN
     Dosage: UNK

REACTIONS (1)
  - Seizure [Unknown]

NARRATIVE: CASE EVENT DATE: 2001
